FAERS Safety Report 12313383 (Version 1)
Quarter: 2016Q2

REPORT INFORMATION
  Report Type: Spontaneous
  Country: US (occurrence: None)
  Receive Date: 20160427
  Receipt Date: 20160427
  Transmission Date: 20160815
  Serious: Yes (Other)
  Sender: FDA-Public Use
  Company Number: None

PATIENT
  Age: 80 Year
  Sex: Male
  Weight: 63.05 kg

DRUGS (2)
  1. LIDOCAINE. [Suspect]
     Active Substance: LIDOCAINE
     Indication: PRODUCT USED FOR UNKNOWN INDICATION
     Dosage: 1 PATCH 12 HR. APPLICATION APPLIED TO SKIN
     Route: 061
     Dates: start: 20160101
  2. LIDODERM [Concomitant]
     Active Substance: LIDOCAINE

REACTIONS (4)
  - Confusional state [None]
  - Product quality issue [None]
  - Wrong technique in product usage process [None]
  - Product adhesion issue [None]

NARRATIVE: CASE EVENT DATE: 201601
